FAERS Safety Report 8419116-8 (Version None)
Quarter: 2012Q2

REPORT INFORMATION
  Report Type: 
  Country: None (occurrence: None)
  Receive Date: 20120607
  Receipt Date: 20120606
  Transmission Date: 20120825
  Serious: Yes (Life-Threatening, Hospitalization, Other)
  Sender: FDA-Public Use
  Company Number: PHFR2012GB002288

PATIENT
  Sex: Male

DRUGS (6)
  1. DIAZEPAM [Concomitant]
     Dosage: 5 MG, DAILY
     Route: 048
     Dates: start: 20110401
  2. DIAZEPAM [Concomitant]
     Dosage: 2.5 MG, DAILY
     Route: 048
     Dates: start: 20120301
  3. AMISULPRIDE [Concomitant]
     Dosage: 400 MG, DAILY
     Route: 048
     Dates: start: 20120301
  4. CLOZARIL [Suspect]
     Indication: SCHIZOPHRENIA
     Route: 048
     Dates: start: 20110121
  5. CLOZARIL [Suspect]
     Dosage: 300 MG, DAILY
     Route: 048
     Dates: start: 20110401
  6. VENLAFAXINE [Concomitant]
     Dosage: 187.5 MG, DAILY
     Route: 048
     Dates: start: 20110401

REACTIONS (3)
  - APPENDICITIS PERFORATED [None]
  - THROMBOSIS [None]
  - VEIN DISORDER [None]
